FAERS Safety Report 16629891 (Version 1)
Quarter: 2019Q3

REPORT INFORMATION
  Report Type: Spontaneous
  Country: GB (occurrence: GB)
  Receive Date: 20190725
  Receipt Date: 20190725
  Transmission Date: 20191004
  Serious: Yes (Hospitalization)
  Sender: FDA-Public Use
  Company Number: PHHY2019GB170265

PATIENT
  Age: 33 Year
  Sex: Female
  Weight: 66 kg

DRUGS (23)
  1. PARACETAMOL [Suspect]
     Active Substance: ACETAMINOPHEN
     Indication: PYREXIA
  2. SODIUM CHLORIDE. [Suspect]
     Active Substance: SODIUM CHLORIDE
     Indication: PRODUCT USED FOR UNKNOWN INDICATION
     Dosage: 4 ML, QD (EVERY MORNING AT 6 A.M., MUCOLYTIC)
     Route: 065
  3. FLUTICASONE FUROATE [Suspect]
     Active Substance: FLUTICASONE FUROATE
     Indication: RHINITIS
     Dosage: 27.5 MG, QD (EACH MORNING)
     Route: 065
  4. OMEPRAZOLE. [Suspect]
     Active Substance: OMEPRAZOLE
     Indication: GASTROOESOPHAGEAL REFLUX DISEASE
     Dosage: 40 MG, UNK
     Route: 048
  5. MACROGOL [Suspect]
     Active Substance: POLYETHYLENE GLYCOLS
     Indication: DISTAL INTESTINAL OBSTRUCTION SYNDROME
     Dosage: 1 DF, BID (1 SACHET TWICE DAILY AT L0AM AND 10PM 10 DAYS)
     Route: 048
  6. SODIUM CHLORIDE. [Suspect]
     Active Substance: SODIUM CHLORIDE
     Indication: HYPONATRAEMIA
     Dosage: 600 MG, (1800 MG 3 TIMES A DAY)
     Route: 048
  7. PARACETAMOL [Suspect]
     Active Substance: ACETAMINOPHEN
     Indication: PAIN
     Dosage: 500 MG, (MAX 4G QD, 1000 MG FOUR TIMES A DAY PRN 7 DAYS)
     Route: 048
  8. DOCUSATE SODIUM. [Suspect]
     Active Substance: DOCUSATE SODIUM
     Indication: CONSTIPATION
     Dosage: 200 MG, QD
     Route: 048
  9. COLECALCIFEROL [Suspect]
     Active Substance: CHOLECALCIFEROL
     Indication: PANCREATIC FAILURE
     Dosage: 800 DF, (CAPSULES/TABLETS, 800 UNIT EACH MORNING 28 DAYS)
     Route: 048
  10. COLOBREATHE [Suspect]
     Active Substance: COLISTIMETHATE SODIUM
     Indication: CYSTIC FIBROSIS
  11. DORNASE ALFA. [Suspect]
     Active Substance: DORNASE ALFA
     Indication: PRODUCT USED FOR UNKNOWN INDICATION
     Dosage: 2.5 MG, (EACH MORNING 2 DAYS, MUCOLYTIC)
     Route: 065
  12. ZOPICLONE [Suspect]
     Active Substance: ZOPICLONE
     Indication: INSOMNIA
     Dosage: 3.75 MG, QD (EACH NIGHT 28 DAYS)
     Route: 048
  13. CREON [Suspect]
     Active Substance: PANCRELIPASE AMYLASE\PANCRELIPASE LIPASE\PANCRELIPASE PROTEASE
     Indication: PANCREATIC FAILURE
     Dosage: 10000 MG, (5 CAPSULE 3 TIMES A DAY WITH FOOD 07:00, 12:00, 17:00)
     Route: 048
  14. MONTELUKAST SODIUM. [Suspect]
     Active Substance: MONTELUKAST SODIUM
     Indication: ASTHMA
     Dosage: 10 MG, QD (EACH NIGHT 28 DAYS)
     Route: 048
  15. VITAMIN A + D [RETINOL\VITAMIN D NOS] [Suspect]
     Active Substance: RETINOL\VITAMIN D
     Indication: PANCREATIC FAILURE
     Dosage: 2 DF, QD (EVERY MORNING AT 6 AM)
     Route: 048
  16. AZITHROMYCIN ANHYDROUS. [Suspect]
     Active Substance: AZITHROMYCIN ANHYDROUS
     Indication: PSEUDOMONAS INFECTION
     Dosage: 250 MG, QD (EACH MORNING 28 DAYS)
     Route: 048
  17. COLOBREATHE [Suspect]
     Active Substance: COLISTIMETHATE SODIUM
     Indication: PSEUDOMONAS INFECTION
     Dosage: 1 DF, QD (1662500 IU, TWICE DAILY)
     Route: 055
     Dates: start: 20140523, end: 20190226
  18. MULTI VITAMIN [Suspect]
     Active Substance: VITAMINS
     Indication: PANCREATIC FAILURE
     Dosage: 1 DF, QD (TABLETS/CAPSULES - 1 TABLET EACH MORNING 28 DAYS)
     Route: 048
  19. CICLESONIDE [Suspect]
     Active Substance: CICLESONIDE
     Indication: ASTHMA
     Dosage: 160 UG, QD (EACH MORNING)
     Route: 065
  20. ALPHA-TOCOPHEROL, DL- [Suspect]
     Active Substance: .ALPHA.-TOCOPHEROL, DL-
     Indication: PANCREATIC FAILURE
     Dosage: 134 MG, QD (EVERY MORNING AT 6 AM)
     Route: 048
  21. SYMBICORT [Suspect]
     Active Substance: BUDESONIDE\FORMOTEROL FUMARATE DIHYDRATE
     Indication: ASTHMA
     Dosage: BUDESONIDE 200 MCG/ FORMETROL 6 MCG, 2 PUFF(S) TWICE DAILY MORNING
     Route: 065
  22. SALBUTAMOL [Suspect]
     Active Substance: ALBUTEROL
     Indication: PRODUCT USED FOR UNKNOWN INDICATION
     Dosage: 100 UG, (2 PUFF(S) PRN 28 DAYS)
     Route: 065
  23. CARBOCISTEINE [Suspect]
     Active Substance: CARBOCYSTEINE
     Indication: PRODUCT USED FOR UNKNOWN INDICATION
     Dosage: 375 MG, (750 MG THREE TIMES A DAY, MUCOLYTIC)
     Route: 048

REACTIONS (9)
  - Chest discomfort [Recovered/Resolved]
  - Bone pain [Recovered/Resolved]
  - Cough [Recovered/Resolved]
  - Condition aggravated [Recovered/Resolved]
  - Nasopharyngitis [Recovered/Resolved]
  - Dry throat [Recovered/Resolved]
  - Hypersomnia [Recovered/Resolved]
  - Decreased appetite [Recovered/Resolved]
  - Influenza [Recovered/Resolved]

NARRATIVE: CASE EVENT DATE: 20190222
